FAERS Safety Report 8406401-9 (Version None)
Quarter: 2012Q2

REPORT INFORMATION
  Report Type: 
  Country: None (occurrence: None)
  Receive Date: 20120604
  Receipt Date: 20120530
  Transmission Date: 20120825
  Serious: Yes (Hospitalization)
  Sender: FDA-Public Use
  Company Number: US-AMGEN-USASP2012033753

PATIENT
  Age: 40 Year
  Sex: Male

DRUGS (2)
  1. ENBREL [Suspect]
     Indication: PSORIATIC ARTHROPATHY
     Dosage: 50 MG, QWK
     Dates: start: 19980101
  2. ENBREL [Suspect]
     Indication: PSORIASIS

REACTIONS (8)
  - ROTATOR CUFF SYNDROME [None]
  - JOINT INJURY [None]
  - EXOSTOSIS [None]
  - THERAPEUTIC RESPONSE DECREASED [None]
  - MUSCULOSKELETAL PAIN [None]
  - HYPOAESTHESIA [None]
  - EPIDURAL INJECTION [None]
  - JOINT SWELLING [None]
